FAERS Safety Report 6056835-5 (Version None)
Quarter: 2009Q1

REPORT INFORMATION
  Report Type: 
  Country: None (occurrence: None)
  Receive Date: 20090126
  Receipt Date: 20090107
  Transmission Date: 20090719
  Serious: Yes (Death)
  Sender: FDA-Public Use
  Company Number: B0553666A

PATIENT
  Age: 60 Year
  Sex: Female

DRUGS (1)
  1. BUPROPION HYDROCHLORIDE (FORMULATION UNKNOWN) (BUPROPION HYDROCHLORIDE [Suspect]
     Dosage: ORAL
     Route: 048

REACTIONS (2)
  - CARDIO-RESPIRATORY ARREST [None]
  - COMPLETED SUICIDE [None]
